FAERS Safety Report 14049833 (Version 2)
Quarter: 2017Q4

REPORT INFORMATION
  Report Type: Spontaneous
  Country: US (occurrence: US)
  Receive Date: 20171005
  Receipt Date: 20171101
  Transmission Date: 20180321
  Serious: Yes (Death, Hospitalization)
  Sender: FDA-Public Use
  Company Number: US-PFIZER INC-2017428290

PATIENT
  Age: 80 Year
  Sex: Female

DRUGS (1)
  1. SODIUM BICARBONATE. [Suspect]
     Active Substance: SODIUM BICARBONATE
     Dosage: UNK

REACTIONS (6)
  - Respiratory failure [Fatal]
  - Product use issue [Unknown]
  - Septic shock [Fatal]
  - Pneumonia [Fatal]
  - Organ failure [Fatal]
  - Sepsis [Fatal]
